FAERS Safety Report 16916002 (Version 8)
Quarter: 2022Q4

REPORT INFORMATION
  Report Type: Report from Study
  Country: US (occurrence: US)
  Receive Date: 20191014
  Receipt Date: 20221117
  Transmission Date: 20230113
  Serious: Yes (Life-Threatening, Hospitalization, Other)
  Sender: FDA-Public Use
  Company Number: US-SHIRE-US201934289

PATIENT
  Age: 51 Year
  Sex: Female

DRUGS (8)
  1. PARATHYROID HORMONE [Suspect]
     Active Substance: PARATHYROID HORMONE
     Indication: Post procedural hypoparathyroidism
     Dosage: 100 MICROGRAM, QD
     Route: 050
  2. PARATHYROID HORMONE [Suspect]
     Active Substance: PARATHYROID HORMONE
     Indication: Post procedural hypoparathyroidism
     Dosage: 100 MICROGRAM, QD
     Route: 050
  3. PARATHYROID HORMONE [Suspect]
     Active Substance: PARATHYROID HORMONE
     Indication: Post procedural hypoparathyroidism
     Dosage: 100 MICROGRAM, QD
     Route: 050
  4. PARATHYROID HORMONE [Suspect]
     Active Substance: PARATHYROID HORMONE
     Dosage: 50 MICROGRAM, QD
     Route: 058
  5. PARATHYROID HORMONE [Suspect]
     Active Substance: PARATHYROID HORMONE
     Dosage: 50 MICROGRAM, QD
     Route: 058
  6. PARATHYROID HORMONE [Suspect]
     Active Substance: PARATHYROID HORMONE
     Dosage: 50 MICROGRAM, QD
     Route: 058
  7. CALCITRIOL [Concomitant]
     Active Substance: CALCITRIOL
     Indication: Product used for unknown indication
  8. CALCIUM [Concomitant]
     Active Substance: CALCIUM
     Indication: Product used for unknown indication

REACTIONS (4)
  - Hypocalcaemia [Unknown]
  - Chronic kidney disease [Unknown]
  - Feeling abnormal [Unknown]
  - Recalled product [Unknown]

NARRATIVE: CASE EVENT DATE: 20191115
